FAERS Safety Report 25673443 (Version 1)
Quarter: 2025Q3

REPORT INFORMATION
  Report Type: Report from Study
  Country: CN (occurrence: CN)
  Receive Date: 20250813
  Receipt Date: 20250813
  Transmission Date: 20251020
  Serious: Yes (Other)
  Sender: ROCHE
  Company Number: CN-ROCHE-10000353411

PATIENT

DRUGS (9)
  1. TECENTRIQ [Suspect]
     Active Substance: ATEZOLIZUMAB
     Indication: Non-small cell lung cancer
     Route: 065
  2. CAMRELIZUMAB [Suspect]
     Active Substance: CAMRELIZUMAB
     Indication: Non-small cell lung cancer
     Route: 065
  3. DURVALUMAB [Suspect]
     Active Substance: DURVALUMAB
     Indication: Non-small cell lung cancer
     Route: 065
  4. NIVOLUMAB [Suspect]
     Active Substance: NIVOLUMAB
     Indication: Non-small cell lung cancer
     Route: 065
  5. PEMBROLIZUMAB [Suspect]
     Active Substance: PEMBROLIZUMAB
     Indication: Non-small cell lung cancer
     Route: 065
  6. SINTILIMAB [Suspect]
     Active Substance: SINTILIMAB
     Indication: Non-small cell lung cancer
     Route: 065
  7. SUGEMALIMAB [Suspect]
     Active Substance: SUGEMALIMAB
     Indication: Non-small cell lung cancer
     Route: 065
  8. TISLELIZUMAB [Suspect]
     Active Substance: TISLELIZUMAB
     Indication: Non-small cell lung cancer
     Route: 065
  9. TORIPALIMAB [Suspect]
     Active Substance: TORIPALIMAB
     Indication: Non-small cell lung cancer
     Route: 065

REACTIONS (4)
  - Pneumonitis [Unknown]
  - Oesophagitis [Unknown]
  - Haematotoxicity [Unknown]
  - Dermatitis [Unknown]
